FAERS Safety Report 18722479 (Version 1)
Quarter: 2021Q1

REPORT INFORMATION
  Report Type: Spontaneous
  Country: US (occurrence: US)
  Receive Date: 20210111
  Receipt Date: 20210111
  Transmission Date: 20210419
  Serious: Yes (Hospitalization, Other)
  Sender: FDA-Public Use
  Company Number: US-VISTAPHARM, INC.-VER202012-002273

PATIENT
  Age: 59 Year
  Sex: Male

DRUGS (4)
  1. INSULIN [Concomitant]
     Active Substance: INSULIN NOS
     Dosage: 255 UNITS DAILY
  2. INSULIN [Concomitant]
     Active Substance: INSULIN NOS
     Indication: TYPE 2 DIABETES MELLITUS
     Dosage: UNKNOWN
  3. DIGOXIN. [Suspect]
     Active Substance: DIGOXIN
     Indication: CARDIAC FAILURE
     Dosage: UNKNOWN
  4. INSULIN [Concomitant]
     Active Substance: INSULIN NOS
     Dosage: 200 UNITS DAILY

REACTIONS (3)
  - Hyperglycaemia [Unknown]
  - Acute kidney injury [Unknown]
  - Toxicity to various agents [Recovered/Resolved]
